FAERS Safety Report 9321484 (Version 1)
Quarter: 2013Q2

REPORT INFORMATION
  Report Type: Report from Study
  Country: US (occurrence: US)
  Receive Date: 20130531
  Receipt Date: 20130531
  Transmission Date: 20140414
  Serious: Yes (Hospitalization, Other)
  Sender: FDA-Public Use
  Company Number: US-BRISTOL-MYERS SQUIBB COMPANY-18941005

PATIENT
  Age: 57 Year
  Sex: Male
  Weight: 156 kg

DRUGS (2)
  1. IPILIMUMAB [Suspect]
     Indication: MALIGNANT MELANOMA
     Dosage: 3MG/KG IV OVER 90MIN Q3 WEEKSX4DOSES?COURSE:03;TOTAL:466MG?LAST ADMIN:13MAY2013
     Route: 042
     Dates: start: 20130401
  2. INTRON A [Suspect]
     Indication: MALIGNANT MELANOMA
     Dosage: 1DF:20MU/M2;IV;20MIN ON DAY:1-5X4 WKS?10MU/M2;SQ;ON DAY:1,3 + 5X8 WKS?COURSE:03;TOT:78MU
     Route: 042
     Dates: start: 20130401

REACTIONS (2)
  - Dyspnoea [Recovered/Resolved]
  - Anaemia [Recovered/Resolved]
